FAERS Safety Report 21588847 (Version 1)
Quarter: 2022Q4

REPORT INFORMATION
  Report Type: Spontaneous
  Country: US (occurrence: None)
  Receive Date: 20221110
  Receipt Date: 20221110
  Transmission Date: 20230113
  Serious: No
  Sender: FDA-Public Use
  Company Number: None

PATIENT
  Age: 64 Year
  Sex: Female

DRUGS (1)
  1. AIMOVIG [Suspect]
     Active Substance: ERENUMAB-AOOE
     Dosage: 140MG OTHER SUBCUTANEOUS
     Route: 058
     Dates: start: 202203

REACTIONS (4)
  - Fall [None]
  - Head injury [None]
  - Concussion [None]
  - Skin disorder [None]

NARRATIVE: CASE EVENT DATE: 20221110
